FAERS Safety Report 12491904 (Version 4)
Quarter: 2016Q4

REPORT INFORMATION
  Report Type: Spontaneous
  Country: IL (occurrence: IL)
  Receive Date: 20160623
  Receipt Date: 20161202
  Transmission Date: 20170207
  Serious: Yes (Hospitalization)
  Sender: FDA-Public Use
  Company Number: IL-BIOVITRUM-2016IL0441

PATIENT
  Age: 11 Year
  Sex: Female
  Weight: 37.5 kg

DRUGS (2)
  1. ORFADIN [Suspect]
     Active Substance: NITISINONE
     Indication: TYROSINAEMIA
     Route: 048
     Dates: start: 200702, end: 201511
  2. ORFADIN [Suspect]
     Active Substance: NITISINONE
     Route: 048
     Dates: start: 201511

REACTIONS (3)
  - Liver transplant [Recovered/Resolved with Sequelae]
  - Alpha 1 foetoprotein increased [Recovered/Resolved with Sequelae]
  - Hepatocellular carcinoma [Recovered/Resolved with Sequelae]

NARRATIVE: CASE EVENT DATE: 2015
